FAERS Safety Report 18424673 (Version 2)
Quarter: 2020Q4

REPORT INFORMATION
  Report Type: Report from Study
  Country: None (occurrence: NL)
  Receive Date: 20201026
  Receipt Date: 20201215
  Transmission Date: 20210114
  Serious: Yes (Hospitalization)
  Sender: FDA-Public Use
  Company Number: NL-ABBVIE-20K-114-3328976-00

PATIENT
  Sex: Male

DRUGS (7)
  1. LEVODOPA/CARBIDOPA [Concomitant]
     Active Substance: CARBIDOPA\LEVODOPA
     Indication: PARKINSON^S DISEASE
     Dosage: AT 23.00 O^CLOCK
     Route: 048
  2. FLORINEF ACETATE [Concomitant]
     Active Substance: FLUDROCORTISONE ACETATE
     Indication: PRODUCT USED FOR UNKNOWN INDICATION
  3. DUODOPA [Suspect]
     Active Substance: CARBIDOPA\LEVODOPA
     Indication: PARKINSON^S DISEASE
     Dosage: MD 6 CD 3.4 ED 1.5.?STRENGTH: 20 MG/ML 5 MG/ML.
     Route: 050
     Dates: start: 20180111
  4. RIVASTIGMIN [Concomitant]
     Active Substance: RIVASTIGMINE
     Indication: PRODUCT USED FOR UNKNOWN INDICATION
     Dosage: 2 CAPSULES 2 PER DAY
  5. DUODOPA [Interacting]
     Active Substance: CARBIDOPA\LEVODOPA
     Route: 050
  6. TERRA-CORTRIL [Concomitant]
     Active Substance: HYDROCORTISONE ACETATE\OXYTETRACYCLINE HYDROCHLORIDE
     Indication: STOMA SITE REACTION
     Dosage: TERRA CORTRIL OINTMENT
     Route: 003
  7. MADOPAR DISPERSIBL [Concomitant]
     Active Substance: BENSERAZIDE HYDROCHLORIDE\LEVODOPA
     Indication: PARKINSON^S DISEASE
     Dosage: IF NEEDED AT NIGHT
     Route: 048

REACTIONS (39)
  - Anaemia [Unknown]
  - Orthostatic hypotension [Not Recovered/Not Resolved]
  - Muscle rigidity [Not Recovered/Not Resolved]
  - Stoma site erythema [Not Recovered/Not Resolved]
  - Decreased appetite [Not Recovered/Not Resolved]
  - Dyskinesia [Not Recovered/Not Resolved]
  - Malaise [Recovered/Resolved]
  - Dizziness postural [Not Recovered/Not Resolved]
  - Disturbance in attention [Not Recovered/Not Resolved]
  - Flatulence [Not Recovered/Not Resolved]
  - Tremor [Not Recovered/Not Resolved]
  - Weight decreased [Recovered/Resolved]
  - Gait disturbance [Unknown]
  - Somnolence [Unknown]
  - Hallucination, visual [Recovered/Resolved]
  - Cognitive disorder [Not Recovered/Not Resolved]
  - Psychomotor skills impaired [Not Recovered/Not Resolved]
  - Amnesia [Not Recovered/Not Resolved]
  - Abnormal faeces [Not Recovered/Not Resolved]
  - Sleep disorder [Not Recovered/Not Resolved]
  - Dyskinesia [Recovered/Resolved]
  - Parkinson^s disease [Not Recovered/Not Resolved]
  - Alcohol use disorder [Not Recovered/Not Resolved]
  - Drooling [Not Recovered/Not Resolved]
  - Constipation [Not Recovered/Not Resolved]
  - Fibroma [Not Recovered/Not Resolved]
  - On and off phenomenon [Not Recovered/Not Resolved]
  - Mobility decreased [Not Recovered/Not Resolved]
  - Abnormal dreams [Not Recovered/Not Resolved]
  - Therapeutic product effect decreased [Not Recovered/Not Resolved]
  - Restlessness [Not Recovered/Not Resolved]
  - Memory impairment [Not Recovered/Not Resolved]
  - Nocturia [Recovered/Resolved]
  - Mood altered [Not Recovered/Not Resolved]
  - Dehydration [Recovered/Resolved]
  - Wrong technique in device usage process [Unknown]
  - Stoma site discharge [Not Recovered/Not Resolved]
  - Unevaluable event [Not Recovered/Not Resolved]
  - Drug ineffective [Not Recovered/Not Resolved]

NARRATIVE: CASE EVENT DATE: 2020
